FAERS Safety Report 9536667 (Version 4)
Quarter: 2013Q4

REPORT INFORMATION
  Report Type: Spontaneous
  Country: US (occurrence: US)
  Receive Date: 20130919
  Receipt Date: 20131230
  Transmission Date: 20140711
  Serious: Yes (Hospitalization)
  Sender: FDA-Public Use
  Company Number: US-UCBSA-098371

PATIENT
  Age: 56 Year
  Sex: Female
  Weight: 72.57 kg

DRUGS (2)
  1. CIMZIA [Suspect]
     Indication: CROHN^S DISEASE
     Route: 058
     Dates: start: 20091113, end: 2013
  2. PROPAFENONE [Concomitant]
     Indication: ARRHYTHMIA
     Dates: start: 201308

REACTIONS (3)
  - Nasal operation [Recovered/Resolved]
  - Arrhythmia [Recovered/Resolved]
  - Bronchitis [Recovered/Resolved]
